FAERS Safety Report 5250950-1 (Version None)
Quarter: 2007Q1

REPORT INFORMATION
  Report Type: 
  Country: None (occurrence: None)
  Receive Date: 20070228
  Receipt Date: 20060829
  Transmission Date: 20070707
  Serious: No
  Sender: FDA-Public Use
  Company Number: US-GLAXOSMITHKLINE-A0614419A

PATIENT
  Age: 45 Year
  Sex: Male

DRUGS (2)
  1. LAMICTAL [Suspect]
     Indication: DEPRESSION
     Dosage: 200MG PER DAY
     Route: 048
     Dates: start: 20060501
  2. EFFEXOR XR [Concomitant]
     Dosage: 75MG PER DAY
     Route: 048
     Dates: start: 20030701

REACTIONS (1)
  - DRUG SCREEN POSITIVE [None]
